FAERS Safety Report 7038482-1 (Version None)
Quarter: 2010Q4

REPORT INFORMATION
  Report Type: 
  Country: None (occurrence: None)
  Receive Date: 20101011
  Receipt Date: 20100303
  Transmission Date: 20110411
  Serious: Yes (Other)
  Sender: FDA-Public Use
  Company Number: US-PFIZER INC-2010028576

PATIENT
  Sex: Male
  Weight: 52.154 kg

DRUGS (3)
  1. GABAPENTIN [Suspect]
     Indication: ANXIETY
     Dosage: 100 MG, DAILY
     Route: 048
     Dates: start: 20100228, end: 20100228
  2. DIAZEPAM [Concomitant]
     Dosage: UNK
  3. AVODART [Concomitant]
     Dosage: UNK

REACTIONS (1)
  - TACHYCARDIA [None]
